FAERS Safety Report 5766644-X (Version None)
Quarter: 2008Q2

REPORT INFORMATION
  Report Type: 
  Country: None (occurrence: None)
  Receive Date: 20080610
  Receipt Date: 20080610
  Transmission Date: 20081010
  Serious: Yes (Other)
  Sender: FDA-Public Use
  Company Number: None

PATIENT
  Age: 49 Year
  Sex: Female
  Weight: 86 kg

DRUGS (1)
  1. CLOZAPINE [Suspect]
     Dosage: 200MG BREAKFAST PO 800MG BEDTIME PO LONG TIME
     Route: 048

REACTIONS (2)
  - DYSKINESIA [None]
  - DYSTONIA [None]
